FAERS Safety Report 11283576 (Version 1)
Quarter: 2015Q3

REPORT INFORMATION
  Report Type: Spontaneous
  Country: US (occurrence: US)
  Receive Date: 20150720
  Receipt Date: 20150720
  Transmission Date: 20151125
  Serious: Yes (Hospitalization)
  Sender: FDA-Public Use
  Company Number: US-VALEANT PHARMACEUTICALS NORTH AMERICA-2015PROUSA04570

PATIENT

DRUGS (2)
  1. PROVENGE [Suspect]
     Active Substance: SIPULEUCEL-T
     Indication: PROSTATE CANCER METASTATIC
     Dosage: 250 ML, SINGLE
     Route: 042
     Dates: start: 20150618, end: 20150618
  2. PROVENGE [Suspect]
     Active Substance: SIPULEUCEL-T
     Dosage: 250 ML, SINGLE
     Route: 042
     Dates: start: 20150702, end: 20150702

REACTIONS (3)
  - Abdominal pain upper [Unknown]
  - Nephrolithiasis [Unknown]
  - Flank pain [Unknown]

NARRATIVE: CASE EVENT DATE: 20150713
